FAERS Safety Report 25414737 (Version 2)
Quarter: 2025Q3

REPORT INFORMATION
  Report Type: Report from Study
  Country: IN (occurrence: IN)
  Receive Date: 20250609
  Receipt Date: 20250701
  Transmission Date: 20251020
  Serious: Yes (Hospitalization)
  Sender: MERCK SHARP & DOHME LLC
  Company Number: IN-ASTRAZENECA-202504GLO003940IN

PATIENT
  Age: 61 Year
  Sex: Female

DRUGS (9)
  1. PEMBROLIZUMAB [Suspect]
     Active Substance: PEMBROLIZUMAB
     Indication: Breast cancer
     Dosage: 200 MG, ONCE EVERY 3 WK
     Route: 050
     Dates: start: 20240731, end: 20250529
  2. GLIMIPRIME MP [Concomitant]
     Indication: Type 2 diabetes mellitus
     Dosage: 67 MG, QD
     Route: 050
     Dates: start: 2023
  3. AZITHROMYCIN HEMIETHANOLATE MONOHYDRATE [Concomitant]
     Active Substance: AZITHROMYCIN HEMIETHANOLATE MONOHYDRATE
     Indication: Erythrasma
     Dosage: 500 MG, SINGLE
     Route: 050
     Dates: start: 20250128
  4. CYCLOPHOSPHAMIDE [Suspect]
     Active Substance: CYCLOPHOSPHAMIDE
     Indication: Breast cancer
     Dosage: 600 MG/M2, ONCE EVERY 3 WK
     Route: 050
     Dates: start: 20241112, end: 20250116
  5. CARBOPLATIN [Suspect]
     Active Substance: CARBOPLATIN
     Indication: Breast cancer
     Dosage: 1.5 AUC, ONCE EVERY 3 WK
     Route: 050
     Dates: start: 20240731, end: 20241105
  6. EPIRUBICIN [Suspect]
     Active Substance: EPIRUBICIN
     Indication: Breast cancer
     Dosage: 90 MG/M2, ONCE EVERY 3 WK
     Route: 050
     Dates: start: 20241112, end: 20250116
  7. PACLITAXEL [Suspect]
     Active Substance: PACLITAXEL
     Indication: Breast cancer
     Dosage: 80 MG/M2, ONCE EVERY 3 WK
     Route: 050
     Dates: start: 20240731, end: 20241105
  8. LEVOTHYROXINE SODIUM [Concomitant]
     Active Substance: LEVOTHYROXINE SODIUM
     Indication: Primary hypothyroidism
     Dosage: 50 MG, QD
     Route: 050
     Dates: start: 2023
  9. LEVOSIZ [Concomitant]
     Indication: Erythrasma
     Dosage: 5 MG, SINGLE
     Route: 050
     Dates: start: 20250128

REACTIONS (1)
  - Urinary tract infection [Not Recovered/Not Resolved]

NARRATIVE: CASE EVENT DATE: 20250404
